FAERS Safety Report 17373389 (Version 10)
Quarter: 2020Q2

REPORT INFORMATION
  Report Type: Report from Study
  Country: US (occurrence: US)
  Receive Date: 20200205
  Receipt Date: 20200626
  Transmission Date: 20200713
  Serious: Yes (Other)
  Sender: FDA-Public Use
  Company Number: US-B.I. PHARMACEUTICALS,INC./RIDGEFIELD-2018-BI-000168

PATIENT
  Age: 77 Year
  Sex: Male

DRUGS (15)
  1. FUROSEMIDE. [Concomitant]
     Active Substance: FUROSEMIDE
     Indication: PRODUCT USED FOR UNKNOWN INDICATION
     Route: 065
  2. HYDROXYCHLOROQUINE [Concomitant]
     Active Substance: HYDROXYCHLOROQUINE
     Indication: PRODUCT USED FOR UNKNOWN INDICATION
     Route: 065
  3. IRON [Concomitant]
     Active Substance: IRON
     Indication: PRODUCT USED FOR UNKNOWN INDICATION
     Dosage: STRENGTH: 325/65MG
     Route: 065
  4. OFEV [Suspect]
     Active Substance: NINTEDANIB
     Route: 048
     Dates: start: 20200206
  5. MINOXIDIL. [Concomitant]
     Active Substance: MINOXIDIL
     Indication: PRODUCT USED FOR UNKNOWN INDICATION
     Dosage: FORM OF ADMIN: POW
     Route: 065
  6. OFEV [Suspect]
     Active Substance: NINTEDANIB
     Dosage: ALTERNATING 100 AND 150 MG TABLES
     Route: 048
  7. ALBUTEROL SULFATE. [Concomitant]
     Active Substance: ALBUTEROL SULFATE
     Indication: PRODUCT USED FOR UNKNOWN INDICATION
     Dosage: FORM OF ADMIN: NEB
     Route: 065
  8. TRIAMTERENE. [Concomitant]
     Active Substance: TRIAMTERENE
     Indication: PRODUCT USED FOR UNKNOWN INDICATION
     Dosage: FORM OF ADMIN: POW
     Route: 065
  9. PROBIOTIC [Concomitant]
     Active Substance: PROBIOTICS NOS
     Indication: PRODUCT USED FOR UNKNOWN INDICATION
     Route: 065
  10. QUINAPRIL. [Concomitant]
     Active Substance: QUINAPRIL
     Indication: PRODUCT USED FOR UNKNOWN INDICATION
     Route: 065
  11. LOPERAMIDE HCL [Concomitant]
     Active Substance: LOPERAMIDE HYDROCHLORIDE
     Indication: PRODUCT USED FOR UNKNOWN INDICATION
     Dosage: FORM OF ADMIN: POW
     Route: 065
  12. OFEV [Suspect]
     Active Substance: NINTEDANIB
     Indication: IDIOPATHIC PULMONARY FIBROSIS
     Route: 048
     Dates: start: 20171219
  13. OFEV [Suspect]
     Active Substance: NINTEDANIB
     Indication: INTERSTITIAL LUNG DISEASE
     Dosage: TAKE 1 CAPSULE (100 MG) BY MOUTH TWICE A DAY
     Route: 048
     Dates: start: 20180416
  14. DOXAZOSIN [Concomitant]
     Active Substance: DOXAZOSIN MESYLATE
     Indication: PRODUCT USED FOR UNKNOWN INDICATION
     Dosage: FORM OF ADMIN: POW
     Route: 065
  15. SIMVASTATIN. [Concomitant]
     Active Substance: SIMVASTATIN
     Indication: PRODUCT USED FOR UNKNOWN INDICATION
     Dosage: FORM OF ADMIN: POW
     Route: 065

REACTIONS (48)
  - Epistaxis [Not Recovered/Not Resolved]
  - Liver function test increased [Recovered/Resolved]
  - Thirst [Unknown]
  - Bacterial infection [Not Recovered/Not Resolved]
  - Cough [Recovered/Resolved]
  - Hypertension [Recovered/Resolved]
  - Renal pain [Not Recovered/Not Resolved]
  - Hepatic enzyme increased [Not Recovered/Not Resolved]
  - Bacterial infection [Unknown]
  - Wheezing [Not Recovered/Not Resolved]
  - Malaise [Not Recovered/Not Resolved]
  - Glaucoma [Not Recovered/Not Resolved]
  - Nocturia [Not Recovered/Not Resolved]
  - Asthenia [Not Recovered/Not Resolved]
  - Diarrhoea [Not Recovered/Not Resolved]
  - Cough [Not Recovered/Not Resolved]
  - Pain [Not Recovered/Not Resolved]
  - Abdominal discomfort [Not Recovered/Not Resolved]
  - Abdominal pain [Not Recovered/Not Resolved]
  - Burning sensation [Unknown]
  - Dyspnoea [Not Recovered/Not Resolved]
  - Diarrhoea [Recovered/Resolved]
  - Liver disorder [Not Recovered/Not Resolved]
  - Fatigue [Not Recovered/Not Resolved]
  - Hepatic enzyme increased [Unknown]
  - Gastric disorder [Unknown]
  - Blood iron decreased [Not Recovered/Not Resolved]
  - Cough [Not Recovered/Not Resolved]
  - Dehydration [Recovered/Resolved]
  - Hernia [Unknown]
  - Nasal congestion [Not Recovered/Not Resolved]
  - Gastrooesophageal reflux disease [Not Recovered/Not Resolved]
  - Flatulence [Not Recovered/Not Resolved]
  - Gastric disorder [Recovered/Resolved]
  - Decreased appetite [Not Recovered/Not Resolved]
  - Hypertension [Recovered/Resolved]
  - Nasopharyngitis [Not Recovered/Not Resolved]
  - Nausea [Not Recovered/Not Resolved]
  - Gastric infection [Not Recovered/Not Resolved]
  - Dyspnoea [Unknown]
  - Liver disorder [Recovered/Resolved]
  - Weight decreased [Not Recovered/Not Resolved]
  - Productive cough [Not Recovered/Not Resolved]
  - Dyspnoea [Not Recovered/Not Resolved]
  - Peripheral swelling [Not Recovered/Not Resolved]
  - Dehydration [Unknown]
  - Cough [Unknown]
  - Nausea [Unknown]

NARRATIVE: CASE EVENT DATE: 20171231
